FAERS Safety Report 13587037 (Version 1)
Quarter: 2017Q2

REPORT INFORMATION
  Report Type: Spontaneous
  Country: JP (occurrence: JP)
  Receive Date: 20170526
  Receipt Date: 20170526
  Transmission Date: 20170830
  Serious: Yes (Death, Other)
  Sender: FDA-Public Use
  Company Number: JP-GILEAD-2017-0266036

PATIENT
  Age: 84 Year
  Sex: Female

DRUGS (3)
  1. CLOTIAZEPAM [Concomitant]
     Active Substance: CLOTIAZEPAM
  2. JZOLOFT [Concomitant]
     Active Substance: SERTRALINE HYDROCHLORIDE
  3. HARVONI [Suspect]
     Active Substance: LEDIPASVIR\SOFOSBUVIR
     Indication: CHRONIC HEPATITIS C
     Dosage: 1 DF, UNK
     Route: 048
     Dates: start: 20170301, end: 20170401

REACTIONS (1)
  - Sudden death [Fatal]

NARRATIVE: CASE EVENT DATE: 20170401
